FAERS Safety Report 8235955-0 (Version None)
Quarter: 2012Q1

REPORT INFORMATION
  Report Type: 
  Country: None (occurrence: None)
  Receive Date: 20120326
  Receipt Date: 20120314
  Transmission Date: 20120608
  Serious: Yes (Other)
  Sender: FDA-Public Use
  Company Number: CI-GILEAD-2012-0052224

PATIENT
  Sex: Female

DRUGS (10)
  1. TRIMETHOPRIM [Concomitant]
     Indication: OPPORTUNISTIC INFECTION PROPHYLAXIS
     Dosage: 160 MG, QD
     Route: 048
     Dates: start: 20081202, end: 20120208
  2. RITONAVIR [Concomitant]
     Indication: HIV INFECTION
     Dosage: 100 MG, QD
     Route: 048
     Dates: start: 20120208
  3. EFAVIRENZ [Concomitant]
     Indication: HIV INFECTION
     Dosage: 600 MG, QD
     Route: 048
     Dates: start: 20110112, end: 20120208
  4. SULFAMETHOXAZOLE [Concomitant]
     Indication: OPPORTUNISTIC INFECTION PROPHYLAXIS
     Dosage: 800 MG, QD
     Route: 048
     Dates: start: 20081202, end: 20120208
  5. LOPINAVIR [Concomitant]
     Indication: HIV INFECTION
     Dosage: 400 MG, QD
     Route: 048
     Dates: start: 20120208
  6. ACETAMINOPHEN [Concomitant]
     Dosage: 500 MG, QD
     Dates: start: 20120103
  7. ERYTHROMYCINE                      /00020901/ [Concomitant]
     Dosage: 500 MG, QD
  8. EMTRICITABINE AND TENOFOVIR DISOPROXIL FUMARATE [Suspect]
     Indication: HIV INFECTION
     Dosage: 1 DF, QD
     Route: 048
     Dates: start: 20110112
  9. AMOXICILLIN AND CLAVULANATE POTASSIUM [Concomitant]
     Dosage: UNK
     Dates: start: 20120103
  10. METRONIDAZOLE [Concomitant]
     Dosage: 500 MG, QD
     Dates: start: 20120104

REACTIONS (1)
  - ABORTION SPONTANEOUS [None]
